FAERS Safety Report 23278979 (Version 3)
Quarter: 2024Q1

REPORT INFORMATION
  Report Type: Spontaneous
  Country: JP (occurrence: JP)
  Receive Date: 20231209
  Receipt Date: 20240107
  Transmission Date: 20240410
  Serious: No
  Sender: FDA-Public Use
  Company Number: JP-JNJFOC-20231160934

PATIENT
  Age: 9 Decade
  Sex: Female

DRUGS (1)
  1. SIMPONI [Suspect]
     Active Substance: GOLIMUMAB
     Indication: Rheumatoid arthritis
     Dosage: DOSE UNKNOWN?STRENGTH: 50.00 MG / 0.50 ML
     Route: 058

REACTIONS (6)
  - Device deployment issue [Unknown]
  - Injury associated with device [Unknown]
  - Drug delivery system malfunction [Unknown]
  - Needle issue [Unknown]
  - Product use issue [Unknown]
  - Off label use [Unknown]

NARRATIVE: CASE EVENT DATE: 20231120
